FAERS Safety Report 5806104-0 (Version None)
Quarter: 2008Q3

REPORT INFORMATION
  Report Type: 
  Country: None (occurrence: None)
  Receive Date: 20080709
  Receipt Date: 20080709
  Transmission Date: 20090109
  Serious: Yes (Death)
  Sender: FDA-Public Use
  Company Number: None

PATIENT
  Age: 62 Year
  Sex: Male
  Weight: 119 kg

DRUGS (1)
  1. WARFARIN SODIUM [Suspect]
     Indication: ATRIAL FIBRILLATION
     Dosage: 22.5 MG QWEEK PO
     Route: 048
     Dates: start: 20050316

REACTIONS (7)
  - ASTHENIA [None]
  - DRUG INTERACTION [None]
  - DYSPNOEA [None]
  - HAEMOPTYSIS [None]
  - HAEMORRHAGE [None]
  - INTERNATIONAL NORMALISED RATIO ABNORMAL [None]
  - INTERNATIONAL NORMALISED RATIO INCREASED [None]
